FAERS Safety Report 18066214 (Version 1)
Quarter: 2020Q3

REPORT INFORMATION
  Report Type: Spontaneous
  Country: US (occurrence: US)
  Receive Date: 20200724
  Receipt Date: 20200724
  Transmission Date: 20201103
  Serious: No
  Sender: FDA-Public Use
  Company Number: US-GLAXOSMITHKLINE-US2020AMR138023

PATIENT
  Age: 76 Year
  Sex: Female
  Weight: 74.83 kg

DRUGS (3)
  1. BUPROPION HYDROCHLORIDE. [Suspect]
     Active Substance: BUPROPION HYDROCHLORIDE
     Indication: PRODUCT USED FOR UNKNOWN INDICATION
     Dosage: UNK
  2. MYRBETRIQ [Concomitant]
     Active Substance: MIRABEGRON
     Indication: PRODUCT USED FOR UNKNOWN INDICATION
     Dosage: UNK
  3. SOOTHE XP [Suspect]
     Active Substance: LIGHT MINERAL OIL\MINERAL OIL
     Indication: DRY EYE
     Dosage: UNK ONE DROP IN BOTH EYES TWO TO THREE TIMES DAILY
     Dates: start: 201909

REACTIONS (4)
  - Eye irritation [Recovered/Resolved]
  - Upper-airway cough syndrome [Unknown]
  - Dysphonia [Unknown]
  - Sinus operation [Not Recovered/Not Resolved]

NARRATIVE: CASE EVENT DATE: 2019
